FAERS Safety Report 9663965 (Version 2)
Quarter: 2013Q4

REPORT INFORMATION
  Report Type: Spontaneous
  Country: JP (occurrence: JP)
  Receive Date: 20131101
  Receipt Date: 20131113
  Transmission Date: 20140711
  Serious: No
  Sender: FDA-Public Use
  Company Number: JP-PFIZER INC-2013311645

PATIENT
  Age: 76 Year
  Sex: Male

DRUGS (2)
  1. LYRICA [Suspect]
     Dosage: 75 MG UNKNOWN FREQUENCY
  2. DUROTEP MT [Suspect]
     Indication: PAIN
     Dosage: UNK

REACTIONS (1)
  - Eyelid oedema [Recovered/Resolved]
